FAERS Safety Report 21146880 (Version 1)
Quarter: 2022Q3

REPORT INFORMATION
  Report Type: Spontaneous
  Country: US (occurrence: None)
  Receive Date: 20220728
  Receipt Date: 20220728
  Transmission Date: 20221027
  Serious: Yes (Hospitalization)
  Sender: FDA-Public Use
  Company Number: None

PATIENT
  Age: 23 Year
  Sex: Female

DRUGS (1)
  1. HUMIRA [Suspect]
     Active Substance: ADALIMUMAB
     Indication: Colitis ulcerative
     Dosage: 40MG  EVERY 14 DAYS SUBCUTANEOUS?
     Route: 058
     Dates: start: 202204

REACTIONS (3)
  - Colitis ulcerative [None]
  - Drug ineffective [None]
  - Insurance issue [None]

NARRATIVE: CASE EVENT DATE: 20220622
